FAERS Safety Report 18534651 (Version 10)
Quarter: 2022Q1

REPORT INFORMATION
  Report Type: Report from Study
  Country: CA (occurrence: CA)
  Receive Date: 20201123
  Receipt Date: 20220225
  Transmission Date: 20220423
  Serious: Yes (Hospitalization, Other)
  Sender: FDA-Public Use
  Company Number: PHHY2017CA130148

PATIENT
  Sex: Female

DRUGS (11)
  1. SANDOSTATIN LAR DEPOT [Suspect]
     Active Substance: OCTREOTIDE ACETATE
     Indication: Acromegaly
     Dosage: 20 MG, QMO
     Route: 030
     Dates: start: 20141202
  2. SANDOSTATIN LAR DEPOT [Suspect]
     Active Substance: OCTREOTIDE ACETATE
     Dosage: 20 MG, QMO
     Route: 030
  3. SANDOSTATIN LAR DEPOT [Suspect]
     Active Substance: OCTREOTIDE ACETATE
     Dosage: 20 MG, QMO
     Route: 030
     Dates: start: 20190913
  4. SANDOSTATIN LAR DEPOT [Suspect]
     Active Substance: OCTREOTIDE ACETATE
     Dosage: 20 MG, QMO
     Route: 030
     Dates: start: 20201104
  5. SANDOSTATIN LAR DEPOT [Suspect]
     Active Substance: OCTREOTIDE ACETATE
     Dosage: UNK
     Route: 065
     Dates: start: 20210709
  6. SERTRALINE [Suspect]
     Active Substance: SERTRALINE HYDROCHLORIDE
     Indication: Product used for unknown indication
     Dosage: 100 MG, QD (EVERY MORNING)
     Route: 065
  7. PRAZIN [Concomitant]
     Indication: Product used for unknown indication
     Dosage: 2 MG (FIVE TIMES A DAY)
     Route: 065
  8. TRAZODONE [Concomitant]
     Active Substance: TRAZODONE HYDROCHLORIDE
     Indication: Product used for unknown indication
     Dosage: 50 MG, QHS
     Route: 065
  9. SYNTHROID [Concomitant]
     Active Substance: LEVOTHYROXINE SODIUM
     Indication: Product used for unknown indication
     Dosage: 1 DF, QD
     Route: 048
  10. ZOLOFT [Concomitant]
     Active Substance: SERTRALINE HYDROCHLORIDE
     Indication: Product used for unknown indication
     Dosage: 1 DF, QD
     Route: 048
  11. ABILIFY [Concomitant]
     Active Substance: ARIPIPRAZOLE
     Indication: Product used for unknown indication
     Dosage: 1 DF, QD
     Route: 048

REACTIONS (37)
  - Syncope [Unknown]
  - Pituitary tumour [Unknown]
  - Brain cancer metastatic [Unknown]
  - Hypothyroidism [Unknown]
  - Feeling abnormal [Unknown]
  - Bone pain [Unknown]
  - Pain [Recovering/Resolving]
  - Blood pressure increased [Unknown]
  - Anxiety [Unknown]
  - Personality disorder [Unknown]
  - Blood pressure abnormal [Unknown]
  - Thinking abnormal [Unknown]
  - Weight increased [Unknown]
  - Memory impairment [Unknown]
  - Arthritis [Unknown]
  - Post-traumatic stress disorder [Unknown]
  - Borderline personality disorder [Unknown]
  - Breast neoplasm [Unknown]
  - Endometriosis [Unknown]
  - Malaise [Unknown]
  - Gait disturbance [Unknown]
  - Neoplasm [Unknown]
  - Hypoacusis [Unknown]
  - Speech disorder [Unknown]
  - Sensation of foreign body [Unknown]
  - Lung disorder [Unknown]
  - Oropharyngeal discomfort [Unknown]
  - Conjunctivitis [Unknown]
  - Confusional state [Unknown]
  - Delusion [Unknown]
  - Dependent personality disorder [Unknown]
  - Stress [Unknown]
  - Injection site mass [Unknown]
  - Heart rate decreased [Unknown]
  - Urticaria [Recovering/Resolving]
  - Asthenia [Unknown]
  - Dyspnoea [Unknown]

NARRATIVE: CASE EVENT DATE: 20140101
